FAERS Safety Report 4794611-1 (Version None)
Quarter: 2005Q4

REPORT INFORMATION
  Report Type: 
  Country: None (occurrence: None)
  Receive Date: 20051011
  Receipt Date: 20051003
  Transmission Date: 20060501
  Serious: Yes (Hospitalization)
  Sender: FDA-Public Use
  Company Number: US-MERCK-0510USA02254

PATIENT
  Age: 53 Year
  Sex: Female
  Weight: 118 kg

DRUGS (2)
  1. VIOXX [Suspect]
     Indication: ARTHRITIS
     Route: 048
     Dates: end: 20020101
  2. VIOXX [Suspect]
     Indication: PAIN
     Route: 048
     Dates: end: 20020101

REACTIONS (2)
  - CARDIAC DISORDER [None]
  - CHEST PAIN [None]
